FAERS Safety Report 21514707 (Version 1)
Quarter: 2022Q4

REPORT INFORMATION
  Report Type: Spontaneous
  Country: US (occurrence: US)
  Receive Date: 20221027
  Receipt Date: 20221027
  Transmission Date: 20230113
  Serious: Yes (Other)
  Sender: FDA-Public Use
  Company Number: US-PFIZER INC-202201258746

PATIENT
  Age: 66 Year
  Sex: Female

DRUGS (2)
  1. IBRANCE [Suspect]
     Active Substance: PALBOCICLIB
     Dosage: 125 MG
  2. IBRANCE [Suspect]
     Active Substance: PALBOCICLIB
     Dosage: 100 MG, CYCLIC (1 TABLET DAILY FOR 3 WEEKS ON THEN 7 DAYS OFF)
     Dates: start: 20201120

REACTIONS (7)
  - Pneumothorax [Unknown]
  - Memory impairment [Unknown]
  - White blood cell count decreased [Unknown]
  - Pain [Unknown]
  - Decreased appetite [Unknown]
  - Peripheral coldness [Unknown]
  - Product dose omission issue [Unknown]
